FAERS Safety Report 4987703-5 (Version None)
Quarter: 2006Q2

REPORT INFORMATION
  Report Type: 
  Country: None (occurrence: None)
  Receive Date: 20060424
  Receipt Date: 20060407
  Transmission Date: 20061013
  Serious: Yes (Other)
  Sender: FDA-Public Use
  Company Number: JP200602001150

PATIENT
  Age: 66 Year
  Sex: Female
  Weight: 59 kg

DRUGS (2)
  1. EVISTA [Suspect]
     Indication: OSTEOPOROSIS
     Dosage: 60 MG, DAILY (1/D), ORAL
     Route: 048
     Dates: start: 20060120, end: 20060129
  2. ALFACALCIDOL (ALFACALCIDOL) [Concomitant]

REACTIONS (2)
  - RETINAL OEDEMA [None]
  - RETINAL VEIN OCCLUSION [None]
